FAERS Safety Report 9187485 (Version 2)
Quarter: 2013Q2

REPORT INFORMATION
  Report Type: Report from Study
  Country: CA (occurrence: CA)
  Receive Date: 20130325
  Receipt Date: 20130524
  Transmission Date: 20140414
  Serious: Yes (Other)
  Sender: FDA-Public Use
  Company Number: CA-BRISTOL-MYERS SQUIBB COMPANY-16865164

PATIENT
  Age: 72 Year
  Sex: Female

DRUGS (6)
  1. ORENCIA [Suspect]
     Indication: RHEUMATOID ARTHRITIS
     Dosage: NO OF INF:48,LAST INF:16AUG,11OCT2012,LOT#2C80093,EXP-SEP14,JUL15?13MAR13 INF CANCELLED
     Route: 042
     Dates: start: 20071010
  2. METHOTREXATE [Concomitant]
     Dosage: ONCE ON SUNDAY
     Route: 058
  3. PLAQUENIL [Concomitant]
  4. PREDNISONE [Concomitant]
  5. DAPSONE [Concomitant]
  6. FLUTICASONE [Concomitant]

REACTIONS (9)
  - Tympanic membrane perforation [Not Recovered/Not Resolved]
  - Pneumonia [Recovered/Resolved]
  - Erythema [Unknown]
  - Haemorrhoids [Unknown]
  - Rash macular [Unknown]
  - Pruritus [Unknown]
  - Infusion site extravasation [Unknown]
  - Rash [Unknown]
  - Urticaria [Unknown]
